FAERS Safety Report 25705309 (Version 1)
Quarter: 2025Q3

REPORT INFORMATION
  Report Type: Spontaneous
  Country: US (occurrence: None)
  Receive Date: 20250819
  Receipt Date: 20250819
  Transmission Date: 20251021
  Serious: Yes (Death)
  Sender: FDA-CTU
  Company Number: None

PATIENT
  Age: 76 Year
  Sex: Male

DRUGS (2)
  1. RIVAROXABAN [Suspect]
     Active Substance: RIVAROXABAN
  2. RIVAROXABAN [Concomitant]
     Active Substance: RIVAROXABAN

REACTIONS (11)
  - Jaundice [None]
  - Dyspnoea [None]
  - Biliary dilatation [None]
  - Chest pain [None]
  - Troponin I increased [None]
  - Haematemesis [None]
  - Upper gastrointestinal haemorrhage [None]
  - Haemoglobin decreased [None]
  - Hypotension [None]
  - Oesophagitis [None]
  - Duodenal neoplasm [None]

NARRATIVE: CASE EVENT DATE: 20240305
